FAERS Safety Report 21188479 (Version 1)
Quarter: 2022Q3

REPORT INFORMATION
  Report Type: Spontaneous
  Country: US (occurrence: US)
  Receive Date: 20220809
  Receipt Date: 20220809
  Transmission Date: 20221026
  Serious: No
  Sender: FDA-Public Use
  Company Number: US-IGSA-BIG0015606

PATIENT
  Sex: Female

DRUGS (6)
  1. GAMUNEX-C [Suspect]
     Active Substance: HUMAN IMMUNOGLOBULIN G
     Indication: Chronic inflammatory demyelinating polyradiculoneuropathy
     Dosage: 0.5 MILLIGRAM/KILOGRAM, Q.4WK.
     Route: 042
  2. BIOTIN [Concomitant]
     Active Substance: BIOTIN
  3. NIACIN [Concomitant]
     Active Substance: NIACIN
  4. VITAMIN A [Concomitant]
     Active Substance: VITAMIN A
  5. VITAMIN B AND C COMPLEX [Concomitant]
  6. VITAMIN D3 [Concomitant]
     Active Substance: CHOLECALCIFEROL

REACTIONS (1)
  - Asthenia [Unknown]
